FAERS Safety Report 9630980 (Version 3)
Quarter: 2013Q4

REPORT INFORMATION
  Report Type: Spontaneous
  Country: BR (occurrence: BR)
  Receive Date: 20131018
  Receipt Date: 20131115
  Transmission Date: 20140711
  Serious: Yes (Other)
  Sender: FDA-Public Use
  Company Number: BR-PFIZER INC-2013296220

PATIENT
  Age: 75 Year
  Sex: Female
  Weight: 48 kg

DRUGS (5)
  1. LIPITOR [Suspect]
     Dosage: UNK
     Route: 048
     Dates: start: 2011
  2. ANGIPRESS [Concomitant]
     Dosage: 50 MG, UNK
     Dates: start: 2000
  3. OSCAL 500-D [Concomitant]
     Dosage: UNK
     Dates: start: 2012
  4. ASPIRINA [Concomitant]
     Dosage: UNK
     Dates: start: 2011
  5. RUSOVAS [Concomitant]
     Indication: BLOOD CHOLESTEROL
     Dosage: UNK
     Dates: start: 201304

REACTIONS (3)
  - Spinal column injury [Unknown]
  - Dry mouth [Unknown]
  - Pollakiuria [Unknown]
